FAERS Safety Report 6645547-2 (Version None)
Quarter: 2010Q1

REPORT INFORMATION
  Report Type: 
  Country: None (occurrence: None)
  Receive Date: 20100323
  Receipt Date: 20100225
  Transmission Date: 20100710
  Serious: No
  Sender: FDA-Public Use
  Company Number: 2009BI018124

PATIENT
  Sex: Male

DRUGS (1)
  1. TYSABRI [Suspect]
     Indication: MULTIPLE SCLEROSIS
     Route: 042
     Dates: start: 20080819

REACTIONS (9)
  - BALANCE DISORDER [None]
  - COGNITIVE DISORDER [None]
  - FATIGUE [None]
  - HEARING IMPAIRED [None]
  - MEMORY IMPAIRMENT [None]
  - NECK PAIN [None]
  - OEDEMA PERIPHERAL [None]
  - PAIN IN EXTREMITY [None]
  - VISUAL IMPAIRMENT [None]
